FAERS Safety Report 9022447 (Version 1)
Quarter: 2013Q1

REPORT INFORMATION
  Report Type: Spontaneous
  Country: GB (occurrence: GB)
  Receive Date: 20130118
  Receipt Date: 20130118
  Transmission Date: 20140127
  Serious: Yes (Other)
  Sender: FDA-Public Use
  Company Number: GB-009507513-1210GBR014542

PATIENT
  Age: 47 Year
  Sex: Female

DRUGS (3)
  1. PEGINTERFERON ALFA-2B [Suspect]
     Indication: HEPATITIS C
     Dosage: UNK, QW
     Route: 058
  2. RIBAVIRIN [Suspect]
     Indication: HEPATITIS C
     Dosage: 2 DF, QD
     Route: 048
  3. TELAPREVIR [Suspect]
     Indication: HEPATITIS C
     Dosage: 750 MG, Q8H
     Route: 048
     Dates: start: 20120918

REACTIONS (5)
  - Steatorrhoea [Not Recovered/Not Resolved]
  - Faeces discoloured [Not Recovered/Not Resolved]
  - Rectal haemorrhage [Not Recovered/Not Resolved]
  - Haemorrhoids [Not Recovered/Not Resolved]
  - Anal pruritus [Not Recovered/Not Resolved]
